FAERS Safety Report 5937146-2 (Version None)
Quarter: 2008Q4

REPORT INFORMATION
  Report Type: 
  Country: None (occurrence: None)
  Receive Date: 20081031
  Receipt Date: 20081024
  Transmission Date: 20090506
  Serious: Yes (Other)
  Sender: FDA-Public Use
  Company Number: FR-WYE-H06587008

PATIENT
  Age: 42 Year
  Sex: Male

DRUGS (3)
  1. PANTOPRAZOLE SODIUM [Suspect]
     Route: 048
     Dates: start: 20080916
  2. PANTOPRAZOLE SODIUM [Suspect]
     Route: 048
     Dates: start: 20080901, end: 20080901
  3. BIRODOGYL [Concomitant]
     Dosage: UNKNOWN

REACTIONS (8)
  - ALANINE AMINOTRANSFERASE INCREASED [None]
  - ASPARTATE AMINOTRANSFERASE INCREASED [None]
  - BACTERAEMIA [None]
  - C-REACTIVE PROTEIN INCREASED [None]
  - CHILLS [None]
  - LIVER FUNCTION TEST ABNORMAL [None]
  - MYALGIA [None]
  - PYREXIA [None]
